FAERS Safety Report 12798248 (Version 2)
Quarter: 2016Q4

REPORT INFORMATION
  Report Type: Spontaneous
  Country: US (occurrence: US)
  Receive Date: 20160930
  Receipt Date: 20161215
  Transmission Date: 20170207
  Serious: No
  Sender: FDA-Public Use
  Company Number: US-LEO PHARMA-244140

PATIENT
  Age: 56 Year
  Sex: Female

DRUGS (1)
  1. PICATO [Suspect]
     Active Substance: INGENOL MEBUTATE
     Indication: ACTINIC KERATOSIS
     Route: 061

REACTIONS (2)
  - Application site erythema [Recovered/Resolved]
  - Eye swelling [Recovered/Resolved]
